FAERS Safety Report 5046538-8 (Version None)
Quarter: 2006Q3

REPORT INFORMATION
  Report Type: 
  Country: None (occurrence: None)
  Receive Date: 20060705
  Receipt Date: 20060705
  Transmission Date: 20061208
  Serious: Yes (Hospitalization, Other)
  Sender: FDA-Public Use
  Company Number: None

PATIENT
  Age: 57 Year
  Sex: Male
  Weight: 87 kg

DRUGS (11)
  1. SIROLIMUS [Suspect]
     Indication: IMMUNOSUPPRESSANT DRUG THERAPY
     Dosage: 4MG  Q AM
     Dates: start: 20060401, end: 20060612
  2. SIROLIMUS [Suspect]
     Indication: RENAL TRANSPLANT
     Dosage: 4MG  Q AM
     Dates: start: 20060401, end: 20060612
  3. PREDNISONE [Concomitant]
  4. METOPROLOL TARTRATE [Concomitant]
  5. COLCHICINE [Concomitant]
  6. SIMVASTATIN [Concomitant]
  7. OMEPRAZOLE [Concomitant]
  8. CACO3 [Concomitant]
  9. IMDUR [Concomitant]
  10. ASPIRIN [Concomitant]
  11. ALLOPURINOL [Concomitant]

REACTIONS (4)
  - HAEMORRHAGE [None]
  - PNEUMONIA [None]
  - PULMONARY ALVEOLAR HAEMORRHAGE [None]
  - STAPHYLOCOCCAL INFECTION [None]
